FAERS Safety Report 19955150 (Version 1)
Quarter: 2021Q4

REPORT INFORMATION
  Report Type: Spontaneous
  Country: US (occurrence: US)
  Receive Date: 20211014
  Receipt Date: 20211014
  Transmission Date: 20220303
  Serious: Yes (Other)
  Sender: FDA-Public Use
  Company Number: None

PATIENT
  Age: 77 Year
  Sex: Male
  Weight: 68.85 kg

DRUGS (1)
  1. EYLEA [Suspect]
     Active Substance: AFLIBERCEPT
     Indication: Neovascular age-related macular degeneration
     Dosage: ?          OTHER FREQUENCY:ONCE;
     Route: 031
     Dates: start: 20210821

REACTIONS (3)
  - Retinal oedema [None]
  - Vitritis [None]
  - Optic neuritis [None]

NARRATIVE: CASE EVENT DATE: 20211013
